FAERS Safety Report 8488653-2 (Version None)
Quarter: 2012Q3

REPORT INFORMATION
  Report Type: 
  Country: None (occurrence: None)
  Receive Date: 20120705
  Receipt Date: 20120702
  Transmission Date: 20120928
  Serious: Yes (Hospitalization, Other)
  Sender: FDA-Public Use
  Company Number: US-PFIZER INC-2012092515

PATIENT
  Sex: Female

DRUGS (3)
  1. LISINOPRIL [Concomitant]
     Indication: HYPERTENSION
     Dosage: UNK
  2. INLYTA [Suspect]
     Indication: METASTATIC RENAL CELL CARCINOMA
  3. INLYTA [Suspect]
     Indication: RENAL CELL CARCINOMA
     Dosage: 5 MG, 2X/DAY
     Route: 048
     Dates: start: 20120306, end: 20120307

REACTIONS (5)
  - HYPOTENSION [None]
  - ACUTE MYOCARDIAL INFARCTION [None]
  - CIRCULATORY COLLAPSE [None]
  - PLEURAL EFFUSION [None]
  - STRESS CARDIOMYOPATHY [None]
